FAERS Safety Report 5625075-3 (Version None)
Quarter: 2008Q1

REPORT INFORMATION
  Report Type: 
  Country: None (occurrence: None)
  Receive Date: 20080213
  Receipt Date: 20080201
  Transmission Date: 20080703
  Serious: Yes (Hospitalization)
  Sender: FDA-Public Use
  Company Number: US-PFIZER INC-2008010782

PATIENT

DRUGS (2)
  1. NORVASC [Suspect]
  2. DRUG, UNSPECIFIED [Concomitant]

REACTIONS (1)
  - HYPONATRAEMIA [None]
